FAERS Safety Report 9159500 (Version 2)
Quarter: 2013Q2

REPORT INFORMATION
  Report Type: Report from Study
  Country: NL (occurrence: NL)
  Receive Date: 20130313
  Receipt Date: 20130626
  Transmission Date: 20140414
  Serious: Yes (Death)
  Sender: FDA-Public Use
  Company Number: PHHY2013NL024073

PATIENT
  Sex: Female

DRUGS (6)
  1. ZOMETA [Suspect]
     Indication: BREAST CANCER METASTATIC
     Dosage: 4 MG/100 ML,1X PER 42 DAYS
     Route: 042
  2. ZOMETA [Suspect]
     Dosage: 4 MG/100 ML,1X PER 42 DAYS
     Route: 042
     Dates: start: 20121004
  3. ZOMETA [Suspect]
     Dosage: 4 MG/100 ML,1X PER 42 DAYS
     Route: 042
     Dates: start: 20121227
  4. ZOMETA [Suspect]
     Dosage: 4 MG/100 ML,1X PER 42 DAYS
     Route: 042
     Dates: start: 20130207
  5. EVEROLIMUS [Concomitant]
  6. EXEMESTANE [Concomitant]

REACTIONS (1)
  - Breast cancer metastatic [Fatal]
